FAERS Safety Report 7178451-4 (Version None)
Quarter: 2010Q4

REPORT INFORMATION
  Report Type: 
  Country: None (occurrence: None)
  Receive Date: 20101220
  Receipt Date: 20101213
  Transmission Date: 20110411
  Serious: Yes (Hospitalization)
  Sender: FDA-Public Use
  Company Number: CN-ABBOTT-10P-035-0691091-00

PATIENT

DRUGS (3)
  1. DEPAKENE [Suspect]
     Indication: INTENTIONAL OVERDOSE
     Dosage: ONCE
     Route: 048
     Dates: start: 20101208, end: 20101208
  2. DEPAKENE [Suspect]
     Indication: DEPRESSION
  3. RISPERDAL [Concomitant]
     Indication: PRODUCT USED FOR UNKNOWN INDICATION

REACTIONS (3)
  - INTENTIONAL OVERDOSE [None]
  - LOSS OF CONSCIOUSNESS [None]
  - VOMITING [None]
